FAERS Safety Report 5640404-2 (Version None)
Quarter: 2008Q1

REPORT INFORMATION
  Report Type: 
  Country: None (occurrence: None)
  Receive Date: 20080227
  Receipt Date: 20080125
  Transmission Date: 20080703
  Serious: No
  Sender: FDA-Public Use
  Company Number: US-BAXTER-2008BH000344

PATIENT
  Age: 50 Year
  Sex: Female
  Weight: 121 kg

DRUGS (24)
  1. HEPARIN SODIUM [Suspect]
     Indication: HAEMODIALYSIS
     Route: 040
     Dates: start: 20080107, end: 20080101
  2. HEPARIN SODIUM [Suspect]
     Route: 040
     Dates: start: 20080107, end: 20080101
  3. HEPARIN SODIUM [Suspect]
     Route: 042
     Dates: start: 20080107, end: 20080107
  4. HEPARIN SODIUM [Suspect]
     Route: 042
     Dates: start: 20080107, end: 20080107
  5. VICODIN [Concomitant]
     Indication: PAIN
     Dosage: DOSE UNIT:UNKNOWN
     Route: 048
  6. CALCIUM ACETATE [Concomitant]
     Indication: HYPERPHOSPHATAEMIA
     Route: 048
  7. AMBIEN [Concomitant]
     Indication: INSOMNIA
     Route: 048
  8. COUMADIN [Concomitant]
     Route: 048
  9. REQUIP [Concomitant]
     Indication: NEUROPATHY PERIPHERAL
     Route: 048
  10. ELAVIL [Concomitant]
     Indication: DEPRESSION
     Route: 048
  11. FLEXERIL [Concomitant]
     Indication: MYALGIA
     Route: 048
  12. VASOTEC [Concomitant]
     Indication: HYPERTENSION
     Route: 048
  13. BULAQUINE [Concomitant]
     Indication: PAIN
     Route: 048
  14. METOPROLOL TARTRATE [Concomitant]
     Indication: HYPERTENSION
     Route: 048
  15. ASPIRIN [Concomitant]
     Route: 048
  16. CYMBALTA [Concomitant]
     Indication: DEPRESSION
     Route: 048
  17. ESOMEPRAZOLE MAGNESIUM [Concomitant]
     Indication: OESOPHAGITIS
     Route: 048
  18. ESOMEPRAZOLE MAGNESIUM [Concomitant]
     Indication: HYPERLIPIDAEMIA
     Route: 048
  19. EPO [Concomitant]
     Indication: ANAEMIA
     Route: 042
  20. VENOFER [Concomitant]
     Indication: ANAEMIA
     Dosage: DOSE UNIT:UNKNOWN
     Route: 042
  21. ZEMPLAR [Concomitant]
     Indication: HYPERPHOSPHATAEMIA
     Dosage: DOSE UNIT:UNKNOWN
     Route: 042
  22. HEPARIN [Concomitant]
     Indication: ANTICOAGULANT THERAPY
     Route: 042
  23. VENOFER [Concomitant]
     Indication: IRON DEFICIENCY
     Route: 042
  24. ZETIA [Concomitant]
     Indication: HYPERLIPIDAEMIA
     Route: 048

REACTIONS (4)
  - BLOOD PRESSURE DECREASED [None]
  - DYSPNOEA [None]
  - HYPERHIDROSIS [None]
  - NAUSEA [None]
